FAERS Safety Report 5488959-5 (Version None)
Quarter: 2007Q4

REPORT INFORMATION
  Report Type: 
  Country: None (occurrence: None)
  Receive Date: 20071016
  Receipt Date: 20070921
  Transmission Date: 20080405
  Serious: Yes (Hospitalization, Other)
  Sender: FDA-Public Use
  Company Number: 2007S1009471

PATIENT
  Age: 58 Year
  Sex: Male

DRUGS (12)
  1. WARFARIN SODIUM [Suspect]
     Indication: DRUG USE FOR UNKNOWN INDICATION
     Dosage: 1 MG;
  2. VARENICLINE TARTRATE (VARENICLINE TARTRATE) [Suspect]
     Indication: SMOKING CESSATION THERAPY
     Dosage: 1 MG; TWICE A DAY, ORAL
     Route: 048
     Dates: start: 20070802, end: 20070814
  3. WARFARIN SODIUM [Concomitant]
  4. AMIODARONE HCL [Concomitant]
  5. AMITRIPTYLINE HCL [Concomitant]
  6. BISOPROLOL FUMARATE [Concomitant]
  7. CANDESARTAN (CANDESARTAN) [Concomitant]
  8. DIGOXIN [Concomitant]
  9. LANSOPRAZOLE [Concomitant]
  10. SIMVASTATIN [Concomitant]
  11. SIMVASTATIN [Concomitant]
  12. SPIRONOLACTONE [Concomitant]

REACTIONS (7)
  - ABDOMINAL PAIN [None]
  - DRUG INTERACTION [None]
  - GROIN PAIN [None]
  - HAEMOGLOBIN DECREASED [None]
  - HAEMORRHAGE [None]
  - INTERNATIONAL NORMALISED RATIO INCREASED [None]
  - INTRA-ABDOMINAL HAEMATOMA [None]
